FAERS Safety Report 4565310-6 (Version None)
Quarter: 2005Q1

REPORT INFORMATION
  Report Type: 
  Country: None (occurrence: None)
  Receive Date: 20050131
  Receipt Date: 20050127
  Transmission Date: 20050727
  Serious: Yes (Life-Threatening, Hospitalization)
  Sender: FDA-Public Use
  Company Number: DE-BRISTOL-MYERS SQUIBB COMPANY-12840732

PATIENT
  Age: 45 Year
  Sex: Male
  Weight: 76 kg

DRUGS (1)
  1. REYATAZ [Suspect]
     Dates: start: 20040713, end: 20040816

REACTIONS (2)
  - CHOLECYSTITIS [None]
  - HEPATIC CIRRHOSIS [None]
